FAERS Safety Report 26199728 (Version 1)
Quarter: 2025Q4

REPORT INFORMATION
  Report Type: Report from Study
  Country: GB (occurrence: GB)
  Receive Date: 20251225
  Receipt Date: 20251225
  Transmission Date: 20260117
  Serious: Yes (Disabling, Other)
  Sender: NOVARTIS
  Company Number: GB-002147023-NVSC2024GB127452

PATIENT
  Age: 57 Year
  Sex: Male

DRUGS (2)
  1. MAYZENT [Suspect]
     Active Substance: SIPONIMOD
     Indication: Secondary progressive multiple sclerosis
     Dosage: 2 MG, QD, JUST COMPLETED TITRATION PERIOD
     Route: 048
     Dates: start: 20240617
  2. MAYZENT [Suspect]
     Active Substance: SIPONIMOD
     Dosage: UNK, QD
     Route: 048

REACTIONS (15)
  - Drug ineffective [Not Recovered/Not Resolved]
  - Multiple sclerosis [Not Recovered/Not Resolved]
  - General physical health deterioration [Unknown]
  - Dysstasia [Unknown]
  - Hypokinesia [Unknown]
  - Feeling abnormal [Unknown]
  - Fatigue [Unknown]
  - Gait inability [Unknown]
  - Weight decreased [Unknown]
  - Muscle mass [Unknown]
  - Muscle spasms [Unknown]
  - Muscle spasticity [Unknown]
  - Urinary tract disorder [Unknown]
  - Gastrointestinal disorder [Unknown]
  - Mental disorder [Unknown]

NARRATIVE: CASE EVENT DATE: 20240617
